FAERS Safety Report 5420797-1 (Version None)
Quarter: 2007Q3

REPORT INFORMATION
  Report Type: 
  Country: None (occurrence: None)
  Receive Date: 20070821
  Receipt Date: 20070820
  Transmission Date: 20080115
  Serious: Yes (Life-Threatening)
  Sender: FDA-Public Use
  Company Number: PHEH2007US11037

PATIENT
  Sex: Female

DRUGS (3)
  1. ZELNORM [Suspect]
     Indication: IRRITABLE BOWEL SYNDROME
     Dosage: UNK, BID
     Dates: start: 20060101
  2. METFORMIN HCL [Concomitant]
     Dosage: 500 MG, UNK
  3. LIPITOR [Concomitant]
     Dosage: 10 MG, UNK

REACTIONS (2)
  - ABDOMINAL PAIN [None]
  - DIARRHOEA [None]
